FAERS Safety Report 14612763 (Version 1)
Quarter: 2018Q1

REPORT INFORMATION
  Report Type: Spontaneous
  Country: SE (occurrence: SE)
  Receive Date: 20180308
  Receipt Date: 20180308
  Transmission Date: 20180509
  Serious: Yes (Other)
  Sender: FDA-Public Use
  Company Number: SE-009507513-1802SWE013582

PATIENT
  Sex: Female

DRUGS (1)
  1. NEXPLANON [Suspect]
     Active Substance: ETONOGESTREL
     Dosage: 1 IMPLANT, UNK
     Route: 059
     Dates: start: 20140916

REACTIONS (8)
  - Arterial injury [Unknown]
  - Haemorrhage [Unknown]
  - Product quality issue [Unknown]
  - Device deployment issue [Not Recovered/Not Resolved]
  - General anaesthesia [Unknown]
  - Implant site nerve injury [Not Recovered/Not Resolved]
  - Hypoaesthesia [Not Recovered/Not Resolved]
  - Device difficult to use [Not Recovered/Not Resolved]

NARRATIVE: CASE EVENT DATE: 20150525
